FAERS Safety Report 5980856-1 (Version None)
Quarter: 2008Q4

REPORT INFORMATION
  Report Type: 
  Country: None (occurrence: None)
  Receive Date: 20081205
  Receipt Date: 20080612
  Transmission Date: 20090506
  Serious: No
  Sender: FDA-Public Use
  Company Number: A0732636A

PATIENT

DRUGS (1)
  1. COMMIT [Suspect]
     Indication: TOBACCO USER

REACTIONS (1)
  - INTENTIONAL DRUG MISUSE [None]
